FAERS Safety Report 15546402 (Version 1)
Quarter: 2018Q4

REPORT INFORMATION
  Report Type: Spontaneous
  Country: US (occurrence: US)
  Receive Date: 20181024
  Receipt Date: 20181024
  Transmission Date: 20190205
  Serious: Yes (Other)
  Sender: FDA-Public Use
  Company Number: US-COOPERSURGICAL, INC.-US-2018CPS033367

PATIENT

DRUGS (1)
  1. PARAGARD T 380A [Suspect]
     Active Substance: COPPER
     Indication: PRODUCT USED FOR UNKNOWN INDICATION
     Dosage: UNK
     Route: 015

REACTIONS (9)
  - Complication of device removal [Unknown]
  - Foreign body in reproductive tract [Unknown]
  - Device use issue [Unknown]
  - Device breakage [Recovered/Resolved]
  - Product quality issue [Unknown]
  - Procedural pain [Unknown]
  - Vaginal haemorrhage [Unknown]
  - Post procedural haemorrhage [Unknown]
  - Muscle spasms [Unknown]

NARRATIVE: CASE EVENT DATE: 2018
